FAERS Safety Report 8957394 (Version 1)
Quarter: 2012Q4

REPORT INFORMATION
  Report Type: 
  Country: DK (occurrence: GR)
  Receive Date: 20121210
  Receipt Date: 20121210
  Transmission Date: 20130627
  Serious: Yes (Life-Threatening, Hospitalization, Other)
  Sender: FDA-Public Use
  Company Number: GR-FRI-1000040968

PATIENT
  Age: 52 Year
  Sex: Male
  Weight: 86 kg

DRUGS (1)
  1. CITALOPRAM [Suspect]
     Dosage: 10 mg
     Route: 048
     Dates: start: 20121118, end: 20121118

REACTIONS (1)
  - Respiratory disorder [Unknown]
